FAERS Safety Report 6439201-X (Version None)
Quarter: 2009Q4

REPORT INFORMATION
  Report Type: 
  Country: None (occurrence: None)
  Receive Date: 20091113
  Receipt Date: 20091104
  Transmission Date: 20100525
  Serious: Yes (Other)
  Sender: FDA-Public Use
  Company Number: US-JNJFOC-20091101832

PATIENT
  Age: 21 Year
  Sex: Female

DRUGS (1)
  1. REMICADE [Suspect]
     Indication: DRUG USE FOR UNKNOWN INDICATION
     Dosage: WEEK 0
     Route: 042
     Dates: start: 20091001

REACTIONS (1)
  - HYPERTENSIVE CRISIS [None]
